FAERS Safety Report 7804377-6 (Version None)
Quarter: 2011Q4

REPORT INFORMATION
  Report Type: 
  Country: None (occurrence: None)
  Receive Date: 20111010
  Receipt Date: 20110927
  Transmission Date: 20120403
  Serious: Yes (Other)
  Sender: FDA-Public Use
  Company Number: US-ELI_LILLY_AND_COMPANY-US201109008092

PATIENT
  Sex: Male

DRUGS (3)
  1. ANTIHYPERTENSIVES [Concomitant]
  2. FORTEO [Suspect]
     Indication: OSTEOPOROSIS
     Dosage: 20 UG, QD
     Dates: start: 20100101
  3. HUMATROPE [Suspect]

REACTIONS (6)
  - BONE DENSITY DECREASED [None]
  - GLUCOCORTICOIDS DECREASED [None]
  - UPPER LIMB FRACTURE [None]
  - THYROXINE DECREASED [None]
  - HIP FRACTURE [None]
  - BLOOD GROWTH HORMONE DECREASED [None]
